FAERS Safety Report 23590333 (Version 1)
Quarter: 2024Q1

REPORT INFORMATION
  Report Type: Spontaneous
  Country: US (occurrence: None)
  Receive Date: 20240301
  Receipt Date: 20240301
  Transmission Date: 20240410
  Serious: No
  Sender: FDA-Public Use
  Company Number: None

PATIENT
  Age: 53 Year
  Sex: Male
  Weight: 87.75 kg

DRUGS (1)
  1. FINASTERIDE [Suspect]
     Active Substance: FINASTERIDE
     Indication: Androgenetic alopecia
     Dosage: FREQUENCY : DAILY;?
     Route: 048
     Dates: start: 20231201, end: 20240225

REACTIONS (2)
  - Penile swelling [None]
  - Gynaecomastia [None]

NARRATIVE: CASE EVENT DATE: 20240225
